FAERS Safety Report 5917602-3 (Version None)
Quarter: 2008Q4

REPORT INFORMATION
  Report Type: 
  Country: None (occurrence: None)
  Receive Date: 20081010
  Receipt Date: 20081010
  Transmission Date: 20090506
  Serious: Yes (Other)
  Sender: FDA-Public Use
  Company Number: None

PATIENT
  Sex: Male
  Weight: 56.6996 kg

DRUGS (1)
  1. LIORESAL [Suspect]
     Indication: MULTIPLE SCLEROSIS
     Dosage: 10MG IN 20ML VOLUME PUMP REFILL IT
     Route: 037
     Dates: start: 20030226, end: 20081009

REACTIONS (2)
  - INCORRECT DRUG ADMINISTRATION RATE [None]
  - WITHDRAWAL SYNDROME [None]
